FAERS Safety Report 19510441 (Version 1)
Quarter: 2021Q3

REPORT INFORMATION
  Report Type: Spontaneous
  Country: US (occurrence: US)
  Receive Date: 20210708
  Receipt Date: 20210708
  Transmission Date: 20211014
  Serious: Yes (Life-Threatening, Hospitalization)
  Sender: FDA-Public Use
  Company Number: None

PATIENT
  Age: 73 Year
  Sex: Male
  Weight: 126.4 kg

DRUGS (1)
  1. IVOSIDENIB [Suspect]
     Active Substance: IVOSIDENIB
     Indication: ACUTE MYELOID LEUKAEMIA
     Route: 048
     Dates: start: 20210419, end: 20210708

REACTIONS (3)
  - Respiratory failure [None]
  - Coronary artery disease [None]
  - Myocarditis [None]

NARRATIVE: CASE EVENT DATE: 20210625
